FAERS Safety Report 7605179-6 (Version None)
Quarter: 2011Q3

REPORT INFORMATION
  Report Type: 
  Country: None (occurrence: None)
  Receive Date: 20110705
  Receipt Date: 20110627
  Transmission Date: 20111222
  Serious: Yes (Other)
  Sender: FDA-Public Use
  Company Number: 963511

PATIENT
  Age: 72 Year
  Sex: Female
  Weight: 54 kg

DRUGS (2)
  1. DEXAMETHASONE [Concomitant]
  2. OXALIPLATIN [Suspect]
     Indication: COLORECTAL CANCER METASTATIC
     Dosage: 195 MG, INTRAVENOUS
     Route: 041
     Dates: start: 20110621, end: 20110621

REACTIONS (5)
  - RESPIRATORY RATE INCREASED [None]
  - DYSPNOEA [None]
  - BLOOD PRESSURE INCREASED [None]
  - HEART RATE INCREASED [None]
  - HEART RATE [None]
